FAERS Safety Report 16864323 (Version 1)
Quarter: 2019Q3

REPORT INFORMATION
  Report Type: Spontaneous
  Country: CN (occurrence: CN)
  Receive Date: 20190927
  Receipt Date: 20190927
  Transmission Date: 20191005
  Serious: Yes (Hospitalization)
  Sender: FDA-Public Use
  Company Number: CN-BAXTER-2019BAX018737

PATIENT
  Age: 49 Year
  Sex: Female
  Weight: 70 kg

DRUGS (3)
  1. ETOPOSIDE. [Suspect]
     Active Substance: ETOPOSIDE
     Indication: NON-HODGKIN^S LYMPHOMA
     Dosage: 1VIAL 100MG/5ML, ETOPOSIDE 150MG + CYCLOPHOSPHAMIDE 2200MG +0.9%SODIUM CHLORIDE 1000ML, DAY1 TO DAY4
     Route: 041
     Dates: start: 20190821, end: 20190824
  2. 0.9% SODIUM CHLORIDE INJECTION [Suspect]
     Active Substance: SODIUM CHLORIDE
     Indication: MEDICATION DILUTION
     Dosage: 0.9% SODIUM CHLORIDE 1000 ML + CYCLOPHOSPHAMIDE 2200 MG + ETOPOSIDE 150 MG, DAY 1 TO DAY 4
     Route: 041
     Dates: start: 20190821, end: 20190824
  3. ENDOXAN [Suspect]
     Active Substance: CYCLOPHOSPHAMIDE
     Indication: NON-HODGKIN^S LYMPHOMA
     Dosage: CYCLOPHOSPHAMIDE 2200 MG + ETOPOSIDE 150 MG + 0.9% SODIUM CHLORIDE 1000 ML, DAY 1 TO DAY 4
     Route: 041
     Dates: start: 20190821, end: 20190824

REACTIONS (1)
  - Bone marrow failure [Recovering/Resolving]

NARRATIVE: CASE EVENT DATE: 20190905
